FAERS Safety Report 7779152-1 (Version None)
Quarter: 2011Q3

REPORT INFORMATION
  Report Type: 
  Country: None (occurrence: None)
  Receive Date: 20110926
  Receipt Date: 20110919
  Transmission Date: 20111222
  Serious: Yes (Hospitalization, Other)
  Sender: FDA-Public Use
  Company Number: PHEH2010US03418

PATIENT
  Sex: Female
  Weight: 70.5 kg

DRUGS (39)
  1. SIMVASTATIN [Concomitant]
     Dosage: 20 MG,
  2. REGLAN [Concomitant]
  3. PRILOSEC [Concomitant]
  4. FEMARA [Concomitant]
  5. AUGMENTIN '125' [Concomitant]
  6. TYLENOL-500 [Concomitant]
  7. VIOXX [Concomitant]
  8. DURAGESIC-100 [Concomitant]
  9. FLUOXETINE [Concomitant]
     Dosage: 20 MG,
  10. PROZAC [Concomitant]
  11. SULFASALAZINE [Concomitant]
  12. DESOXYN [Concomitant]
  13. ZOMETA [Suspect]
     Dates: start: 20051001
  14. WARFARIN SODIUM [Concomitant]
     Dosage: 2 MG,
  15. PREVACID [Concomitant]
     Dosage: 30 MG,
  16. ADRIAMYCIN PFS [Concomitant]
     Dates: start: 20020101, end: 20020601
  17. CELEBREX [Concomitant]
  18. CYMBALTA [Concomitant]
     Dosage: 60 MG, BID
  19. CELEXA [Concomitant]
  20. VITAMIN D [Concomitant]
  21. EFUDEX [Concomitant]
  22. FASLODEX [Concomitant]
     Dates: start: 20030219
  23. VYTORIN [Concomitant]
     Dosage: 20 MG, QD
  24. WELLBUTRIN XL [Concomitant]
  25. AREDIA [Suspect]
  26. MAGNESIUM [Concomitant]
  27. VITAMIN B-12 [Concomitant]
  28. TAMOXIFEN CITRATE [Concomitant]
  29. DOXAZOSIN MESYLATE [Concomitant]
  30. ZOMETA [Suspect]
     Indication: METASTASES TO BONE
     Route: 042
  31. LEVOFLOXACIN [Concomitant]
  32. CLARINEX [Concomitant]
  33. AMBIEN [Concomitant]
  34. ADDERALL 5 [Concomitant]
     Dosage: 15 MG,
  35. BIOTIN [Concomitant]
  36. XELODA [Concomitant]
  37. NEXIUM [Concomitant]
  38. CYTOXAN [Concomitant]
     Dates: start: 20020101, end: 20020601
  39. PROTONIX [Concomitant]

REACTIONS (77)
  - INJURY [None]
  - SCOLIOSIS [None]
  - HYPERLIPIDAEMIA [None]
  - HEPATITIS [None]
  - HEPATIC CYST [None]
  - NEOPLASM MALIGNANT [None]
  - CHEST PAIN [None]
  - DEPRESSION [None]
  - CONTUSION [None]
  - ANAEMIA [None]
  - BONE PAIN [None]
  - BACK PAIN [None]
  - LYMPHOEDEMA [None]
  - ABDOMINAL DISCOMFORT [None]
  - NASAL SEPTUM DEVIATION [None]
  - OESOPHAGITIS [None]
  - RECTAL HAEMORRHAGE [None]
  - HAEMORRHOIDS [None]
  - SENSITIVITY OF TEETH [None]
  - ANXIETY [None]
  - ANHEDONIA [None]
  - SPLENIC LESION [None]
  - HEPATIC MASS [None]
  - ADNEXA UTERI MASS [None]
  - ABDOMINAL DISTENSION [None]
  - HEPATIC LESION [None]
  - DIARRHOEA [None]
  - WEIGHT INCREASED [None]
  - DYSPHAGIA [None]
  - VIRAL INFECTION [None]
  - FALL [None]
  - DYSAESTHESIA [None]
  - BENIGN OVARIAN TUMOUR [None]
  - PAIN [None]
  - HIATUS HERNIA [None]
  - PULMONARY EMBOLISM [None]
  - DYSPEPSIA [None]
  - CONSTIPATION [None]
  - ABDOMINAL PAIN UPPER [None]
  - SPONDYLOLISTHESIS [None]
  - ARTHROPATHY [None]
  - HAEMATOCHEZIA [None]
  - MUSCULAR WEAKNESS [None]
  - FATIGUE [None]
  - OSTEOCHONDROSIS [None]
  - GASTROOESOPHAGEAL REFLUX DISEASE [None]
  - OSTEOARTHRITIS [None]
  - GASTRIC POLYPS [None]
  - SPONDYLOLYSIS [None]
  - ARTERIOSCLEROSIS [None]
  - SINUSITIS [None]
  - ATELECTASIS [None]
  - NAUSEA [None]
  - VAGINAL DISCHARGE [None]
  - DENTAL CARIES [None]
  - NASAL CONGESTION [None]
  - TONGUE DISCOLOURATION [None]
  - SYNOVIAL CYST [None]
  - CERVICAL SPINAL STENOSIS [None]
  - OSTEONECROSIS OF JAW [None]
  - FRACTURED SACRUM [None]
  - SPINAL OSTEOARTHRITIS [None]
  - INTERVERTEBRAL DISC PROTRUSION [None]
  - NEOPLASM PROGRESSION [None]
  - GASTRITIS [None]
  - FLUID RETENTION [None]
  - DIVERTICULUM [None]
  - BONE LESION [None]
  - VOMITING [None]
  - HYPERCHOLESTEROLAEMIA [None]
  - OSTEOPENIA [None]
  - EAR PAIN [None]
  - NECK PAIN [None]
  - VERTEBRAL FORAMINAL STENOSIS [None]
  - RECTAL POLYP [None]
  - HEADACHE [None]
  - PLEURAL FIBROSIS [None]
